FAERS Safety Report 8067715-8 (Version None)
Quarter: 2012Q1

REPORT INFORMATION
  Report Type: 
  Country: None (occurrence: None)
  Receive Date: 20120124
  Receipt Date: 20120123
  Transmission Date: 20120608
  Serious: Yes (Other)
  Sender: FDA-Public Use
  Company Number: US-PFIZER INC-2012018606

PATIENT
  Sex: Female
  Weight: 46 kg

DRUGS (7)
  1. GEODON [Suspect]
     Indication: BIPOLAR DISORDER
     Dosage: 160 MG, 1X/DAY
     Route: 048
  2. ZOLPIDEM [Concomitant]
     Indication: SLEEP DISORDER
     Dosage: UNK
  3. TRAZODONE [Concomitant]
     Dosage: UNK
  4. METHYLPHENIDATE [Concomitant]
     Dosage: UNK
  5. LORAZEPAM [Concomitant]
     Dosage: 5 MG, 1X/DAY
  6. GEODON [Suspect]
     Dosage: UNK
     Route: 048
  7. LAMOTRIGINE [Concomitant]
     Dosage: UNK

REACTIONS (4)
  - DRUG DEPENDENCE [None]
  - MENTAL DISORDER [None]
  - DEPRESSION [None]
  - ACTIVITIES OF DAILY LIVING IMPAIRED [None]
